FAERS Safety Report 5677545-X (Version None)
Quarter: 2008Q1

REPORT INFORMATION
  Report Type: 
  Country: None (occurrence: None)
  Receive Date: 20080318
  Receipt Date: 20080311
  Transmission Date: 20080703
  Serious: Yes (Life-Threatening, Congenital Anomaly, Other)
  Sender: FDA-Public Use
  Company Number: 08032431

PATIENT
  Sex: Female

DRUGS (2)
  1. WARFARIN SODIUM [Suspect]
     Indication: MITRAL VALVE REPLACEMENT
     Dosage: 5MG, QD, ORAL
     Route: 048
  2. LOVENOX [Concomitant]

REACTIONS (9)
  - ASTHENIA [None]
  - CAESAREAN SECTION [None]
  - CEREBRAL ATROPHY CONGENITAL [None]
  - DRUG EXPOSURE DURING PREGNANCY [None]
  - FOETAL GROWTH RETARDATION [None]
  - HAEMORRHAGE INTRACRANIAL [None]
  - INTERNATIONAL NORMALISED RATIO INCREASED [None]
  - PORENCEPHALY [None]
  - SUBDURAL HAEMATOMA [None]
